FAERS Safety Report 6144543-1 (Version None)
Quarter: 2009Q2

REPORT INFORMATION
  Report Type: 
  Country: None (occurrence: None)
  Receive Date: 20090406
  Receipt Date: 20090327
  Transmission Date: 20091009
  Serious: Yes (Hospitalization)
  Sender: FDA-Public Use
  Company Number: PHHY2009MX11738

PATIENT
  Sex: Female

DRUGS (2)
  1. DIOVAN HCT [Suspect]
     Indication: HYPERTENSION
     Dosage: 320/25 MG/DAY
     Route: 048
  2. CALCIUM PHOSPHATE [Concomitant]

REACTIONS (2)
  - EYE INFECTION [None]
  - EYE OPERATION [None]
